FAERS Safety Report 4809239-4 (Version None)
Quarter: 2005Q4

REPORT INFORMATION
  Report Type: 
  Country: None (occurrence: None)
  Receive Date: 20051021
  Receipt Date: 20011115
  Transmission Date: 20060501
  Serious: Yes (Other)
  Sender: FDA-Public Use
  Company Number: GBS011109739

PATIENT
  Age: 23 Year
  Sex: Male
  Weight: 51 kg

DRUGS (3)
  1. ZYPREXA [Suspect]
     Indication: SCHIZOPHRENIA
     Dosage: 20 MG
     Dates: start: 20010601, end: 20011010
  2. PROMETHAZINE [Concomitant]
  3. GAVISCON [Concomitant]

REACTIONS (1)
  - NEUTROPENIA [None]
